FAERS Safety Report 12833203 (Version 4)
Quarter: 2020Q4

REPORT INFORMATION
  Report Type: Spontaneous
  Country: US (occurrence: US)
  Receive Date: 20161010
  Receipt Date: 20201216
  Transmission Date: 20210113
  Serious: Yes (Death, Hospitalization)
  Sender: FDA-Public Use
  Company Number: US-JNJFOC-20161007268

PATIENT
  Age: 78 Year
  Sex: Female

DRUGS (3)
  1. XARELTO [Suspect]
     Active Substance: RIVAROXABAN
     Route: 048
     Dates: start: 201503, end: 20150507
  2. XARELTO [Suspect]
     Active Substance: RIVAROXABAN
     Indication: CEREBROVASCULAR ACCIDENT PROPHYLAXIS
     Route: 048
     Dates: start: 201502
  3. XARELTO [Suspect]
     Active Substance: RIVAROXABAN
     Indication: ATRIAL FIBRILLATION
     Route: 048
     Dates: start: 20150206, end: 20150325

REACTIONS (2)
  - Lower gastrointestinal haemorrhage [Recovered/Resolved]
  - Large intestinal haemorrhage [Unknown]

NARRATIVE: CASE EVENT DATE: 201503
